FAERS Safety Report 10159848 (Version 1)
Quarter: 2014Q2

REPORT INFORMATION
  Report Type: Spontaneous
  Country: US (occurrence: US)
  Receive Date: 20140508
  Receipt Date: 20140508
  Transmission Date: 20141212
  Serious: No
  Sender: FDA-Public Use
  Company Number: US-GLAXOSMITHKLINE-A1036325A

PATIENT
  Age: 36 Year
  Sex: Female

DRUGS (8)
  1. TYKERB [Suspect]
     Indication: BREAST CANCER
     Dosage: 1000MG PER DAY
     Route: 048
     Dates: start: 20130724, end: 20130904
  2. VALACYCLOVIR [Suspect]
     Indication: SKIN ULCER
     Dates: start: 20130801
  3. HERCEPTIN [Concomitant]
  4. PRILOSEC [Concomitant]
  5. ASPIRIN [Concomitant]
  6. LORAZEPAM [Concomitant]
  7. BABY ASPIRIN [Concomitant]
  8. ATIVAN [Concomitant]

REACTIONS (18)
  - Rash [Not Recovered/Not Resolved]
  - Acne [Unknown]
  - Stomatitis [Unknown]
  - Nasal dryness [Unknown]
  - Epistaxis [Unknown]
  - Cheilitis [Unknown]
  - Eating disorder [Unknown]
  - Oral pain [Unknown]
  - Drug ineffective [Unknown]
  - Off label use [Unknown]
  - Stomatitis [Unknown]
  - Tongue ulceration [Not Recovered/Not Resolved]
  - Lip ulceration [Not Recovered/Not Resolved]
  - Pruritus [Not Recovered/Not Resolved]
  - Tongue eruption [Not Recovered/Not Resolved]
  - Rash generalised [Recovered/Resolved]
  - Food poisoning [Recovered/Resolved]
  - Diarrhoea [Recovered/Resolved]
